FAERS Safety Report 22001546 (Version 1)
Quarter: 2023Q1

REPORT INFORMATION
  Report Type: Spontaneous
  Country: US (occurrence: None)
  Receive Date: 20230216
  Receipt Date: 20230216
  Transmission Date: 20230418
  Serious: Yes (Other)
  Sender: FDA-Public Use
  Company Number: 2023A033975

PATIENT
  Age: 91 Year
  Sex: Male
  Weight: 85.3 kg

DRUGS (2)
  1. BRILINTA [Suspect]
     Active Substance: TICAGRELOR
     Indication: Stent placement
     Route: 048
     Dates: start: 202206
  2. BRILINTA [Suspect]
     Active Substance: TICAGRELOR
     Indication: Stent placement
     Route: 048
     Dates: start: 202301

REACTIONS (9)
  - Skin cancer [Unknown]
  - Neoplasm malignant [Unknown]
  - Skin haemorrhage [Unknown]
  - Increased tendency to bruise [Unknown]
  - Skin fragility [Unknown]
  - Wrong technique in product usage process [Unknown]
  - Prostatic specific antigen decreased [Unknown]
  - Product dispensing error [Unknown]
  - Incorrect dose administered [Unknown]

NARRATIVE: CASE EVENT DATE: 20220701
